FAERS Safety Report 9282636 (Version 1)
Quarter: 2013Q2

REPORT INFORMATION
  Report Type: Report from Study
  Country: AR (occurrence: AR)
  Receive Date: 20130510
  Receipt Date: 20130510
  Transmission Date: 20140414
  Serious: Yes (Hospitalization, Other)
  Sender: FDA-Public Use
  Company Number: PHHY2013AR042730

PATIENT
  Age: 52 Year
  Sex: Male

DRUGS (1)
  1. GLIVEC [Suspect]
     Indication: CHRONIC MYELOID LEUKAEMIA
     Dosage: UNK

REACTIONS (4)
  - Calculus urinary [Unknown]
  - Urinary tract obstruction [Unknown]
  - Dyspepsia [Unknown]
  - Diarrhoea [Unknown]
